FAERS Safety Report 6359088-3 (Version None)
Quarter: 2009Q3

REPORT INFORMATION
  Report Type: 
  Country: None (occurrence: None)
  Receive Date: 20090917
  Receipt Date: 20080225
  Transmission Date: 20100115
  Serious: Yes (Hospitalization, Other)
  Sender: FDA-Public Use
  Company Number: US-ASTRAZENECA-2007UW06358

PATIENT
  Age: 717 Month
  Sex: Male
  Weight: 90.7 kg

DRUGS (9)
  1. SEROQUEL [Suspect]
     Indication: POST-TRAUMATIC STRESS DISORDER
     Dosage: 25 - 75 MG
     Route: 048
     Dates: start: 20040413
  2. LITHOBID [Concomitant]
     Dosage: 600 MG-900 MG
     Dates: start: 19981101, end: 20030201
  3. PREVACID [Concomitant]
     Dates: start: 20040517
  4. ALTACE [Concomitant]
     Dates: start: 20040413
  5. NORTRIPTYLINE HCL [Concomitant]
     Indication: SLEEP DISORDER
     Dosage: 50-500 MG AT BED TIME
     Dates: start: 20030402
  6. NORTRIPTYLINE HCL [Concomitant]
     Indication: PAIN
     Dosage: 50-500 MG AT BED TIME
     Dates: start: 20030402
  7. NEURONTIN [Concomitant]
     Indication: TREMOR
     Dosage: 800-1800 MG THREE TIMES A DAY
     Dates: start: 20030402
  8. NEURONTIN [Concomitant]
     Indication: AFFECTIVE DISORDER
     Dosage: 800-1800 MG THREE TIMES A DAY
     Dates: start: 20030402
  9. NEURONTIN [Concomitant]
     Indication: NEURALGIA
     Dosage: 800-1800 MG THREE TIMES A DAY
     Dates: start: 20030402

REACTIONS (19)
  - ABDOMINAL PAIN UPPER [None]
  - BACK DISORDER [None]
  - BENIGN PROSTATIC HYPERPLASIA [None]
  - BLINDNESS [None]
  - BLOOD CHOLESTEROL INCREASED [None]
  - CATARACT [None]
  - CATARACT CORTICAL [None]
  - CATARACT NUCLEAR [None]
  - COUGH [None]
  - DEAFNESS [None]
  - DIVERTICULITIS [None]
  - DYSPNOEA [None]
  - OPTIC NEUROPATHY [None]
  - PANCREATITIS [None]
  - PERIPHERAL VASCULAR DISORDER [None]
  - PUPILLARY REFLEX IMPAIRED [None]
  - TYPE 2 DIABETES MELLITUS [None]
  - VERTIGO [None]
  - VISUAL ACUITY REDUCED [None]
